FAERS Safety Report 13148548 (Version 1)
Quarter: 2017Q1

REPORT INFORMATION
  Report Type: Spontaneous
  Country: US (occurrence: US)
  Receive Date: 20170125
  Receipt Date: 20170125
  Transmission Date: 20170428
  Serious: Yes (Life-Threatening, Hospitalization)
  Sender: FDA-Public Use
  Company Number: US-LPDUSPRD-20170033

PATIENT
  Age: 41 Year
  Sex: Female

DRUGS (6)
  1. DEXAMETHASONE SODIUM PHOSPHATE INJECTION, USP (4901-25) [Suspect]
     Active Substance: DEXAMETHASONE SODIUM PHOSPHATE
     Route: 065
  2. INFLIXIMAB [Concomitant]
     Active Substance: INFLIXIMAB
  3. ADRIAMYCIN [Suspect]
     Active Substance: DOXORUBICIN HYDROCHLORIDE
     Dosage: UNKNOWN
  4. METHOTREXATE. [Concomitant]
     Active Substance: METHOTREXATE
  5. VINCRISTINE [Suspect]
     Active Substance: VINCRISTINE
     Dosage: UNKNOWN
  6. ETOPOSIDE. [Suspect]
     Active Substance: ETOPOSIDE
     Dosage: UNKNOWN

REACTIONS (6)
  - Electrocardiogram ST segment elevation [Unknown]
  - Electrocardiogram ST segment depression [Unknown]
  - Cardiogenic shock [Unknown]
  - Cyanosis [Unknown]
  - Ejection fraction decreased [Unknown]
  - Metabolic acidosis [Unknown]
